FAERS Safety Report 4599454-X (Version None)
Quarter: 2005Q1

REPORT INFORMATION
  Report Type: 
  Country: None (occurrence: None)
  Receive Date: 20050307
  Receipt Date: 20041020
  Transmission Date: 20050727
  Serious: Yes (Hospitalization)
  Sender: FDA-Public Use
  Company Number: JP-NOVOPROD-239962

PATIENT
  Age: 76 Year
  Sex: Male

DRUGS (6)
  1. NOVOLIN R [Suspect]
     Indication: INSULIN-REQUIRING TYPE II DIABETES MELLITUS
     Dosage: 14IU A.M./6IU P.M.
     Route: 058
     Dates: start: 20040806, end: 20041019
  2. NOVOLIN N [Suspect]
     Indication: INSULIN-REQUIRING TYPE II DIABETES MELLITUS
     Dates: start: 20041019, end: 20041022
  3. NORVASC [Concomitant]
     Indication: HYPERTENSION
     Dosage: 5 G, QD
     Route: 048
     Dates: start: 20040113, end: 20041019
  4. HALCION [Concomitant]
     Indication: INSOMNIA
     Dosage: .25 MG, QD
     Route: 048
     Dates: start: 20040930, end: 20041019
  5. CONIEL [Concomitant]
     Indication: HYPERTENSION
     Dates: start: 20041019
  6. DAONIL [Concomitant]
     Indication: ILL-DEFINED DISORDER
     Dates: start: 20041022

REACTIONS (3)
  - DRUG ERUPTION [None]
  - DRUG HYPERSENSITIVITY [None]
  - INSOMNIA [None]
